FAERS Safety Report 5946625-3 (Version None)
Quarter: 2008Q4

REPORT INFORMATION
  Report Type: 
  Country: None (occurrence: None)
  Receive Date: 20081110
  Receipt Date: 20081031
  Transmission Date: 20090506
  Serious: No
  Sender: FDA-Public Use
  Company Number: ZA-ROCHE-591592

PATIENT
  Sex: Female

DRUGS (1)
  1. ROACCUTANE [Suspect]
     Indication: ACNE
     Dosage: FREQUENCY: 20MG ON MONDAY, WEDNESDAY AND FRIDAY.
     Route: 048
     Dates: start: 20080801, end: 20080901

REACTIONS (1)
  - ABORTION INDUCED [None]
